FAERS Safety Report 16559371 (Version 1)
Quarter: 2019Q3

REPORT INFORMATION
  Report Type: Spontaneous
  Country: US (occurrence: US)
  Receive Date: 20190710
  Receipt Date: 20190710
  Transmission Date: 20191004
  Serious: Yes (Other)
  Sender: FDA-Public Use
  Company Number: None

PATIENT
  Age: 24 Year
  Sex: Male
  Weight: 72 kg

DRUGS (1)
  1. BASAGLAR [Suspect]
     Active Substance: INSULIN GLARGINE
     Indication: TYPE 1 DIABETES MELLITUS
     Dosage: ?          QUANTITY:3 MILILITRES;?
     Route: 058
     Dates: start: 20190701, end: 20190710

REACTIONS (3)
  - Device ineffective [None]
  - Drug ineffective [None]
  - Diabetes mellitus inadequate control [None]

NARRATIVE: CASE EVENT DATE: 20190710
